FAERS Safety Report 12690891 (Version 2)
Quarter: 2017Q2

REPORT INFORMATION
  Report Type: Spontaneous
  Country: US (occurrence: US)
  Receive Date: 20160826
  Receipt Date: 20170418
  Transmission Date: 20170830
  Serious: Yes (Other)
  Sender: FDA-Public Use
  Company Number: US-BAYER-2016-160352

PATIENT
  Age: 52 Year

DRUGS (1)
  1. KOGENATE FS [Suspect]
     Active Substance: ANTIHEMOPHILIC FACTOR, HUMAN RECOMBINANT
     Dosage: 3000 U, 30 VIALS
     Dates: start: 201606

REACTIONS (2)
  - Drug ineffective [None]
  - Arthropathy [None]

NARRATIVE: CASE EVENT DATE: 201606
